FAERS Safety Report 17476868 (Version 1)
Quarter: 2020Q1

REPORT INFORMATION
  Report Type: Report from Study
  Country: CA (occurrence: CA)
  Receive Date: 20200228
  Receipt Date: 20200228
  Transmission Date: 20200409
  Serious: Yes (Other)
  Sender: FDA-Public Use
  Company Number: CA-ROCHE-2227571

PATIENT
  Age: 53 Year
  Sex: Female

DRUGS (3)
  1. METHOTREXATE. [Concomitant]
     Active Substance: METHOTREXATE
     Indication: PRODUCT USED FOR UNKNOWN INDICATION
  2. ACTEMRA [Suspect]
     Active Substance: TOCILIZUMAB
     Indication: RHEUMATOID ARTHRITIS
     Route: 058
     Dates: start: 20181128
  3. ACTEMRA [Suspect]
     Active Substance: TOCILIZUMAB
     Dosage: WEEKLY; ONGOING:YES
     Route: 058
     Dates: start: 20190206

REACTIONS (6)
  - Hypoaesthesia [Unknown]
  - Dyspnoea [Recovered/Resolved]
  - Pleural effusion [Unknown]
  - Dizziness [Not Recovered/Not Resolved]
  - Paraesthesia [Unknown]
  - Dyspnoea [Unknown]

NARRATIVE: CASE EVENT DATE: 20181130
